FAERS Safety Report 6104847-5 (Version None)
Quarter: 2009Q1

REPORT INFORMATION
  Report Type: 
  Country: None (occurrence: None)
  Receive Date: 20090306
  Receipt Date: 20090226
  Transmission Date: 20090719
  Serious: Yes (Death, Other)
  Sender: FDA-Public Use
  Company Number: JP-BAYER-200915206GPV

PATIENT
  Age: 43 Year
  Sex: Female

DRUGS (8)
  1. FLUDARABINE PHOSPHATE [Suspect]
     Indication: ACUTE MYELOID LEUKAEMIA
     Route: 065
     Dates: start: 20071201
  2. PREDNISOLONE [Suspect]
     Indication: IMMUNE SYSTEM DISORDER
     Route: 065
  3. MELPHALAN [Suspect]
     Indication: ACUTE MYELOID LEUKAEMIA
     Route: 065
     Dates: start: 20071201
  4. CYCLOSPORINE [Concomitant]
     Indication: PROPHYLAXIS AGAINST GRAFT VERSUS HOST DISEASE
     Dates: start: 20071001
  5. CYCLOSPORINE [Concomitant]
     Dates: start: 20071201
  6. MYCOPHENOLATE MOFETIL [Concomitant]
     Indication: PROPHYLAXIS AGAINST GRAFT VERSUS HOST DISEASE
     Dates: start: 20071201
  7. METHOTREXATE [Concomitant]
     Indication: PROPHYLAXIS AGAINST GRAFT VERSUS HOST DISEASE
     Dates: start: 20071001
  8. CYCLOPHOSPHAMIDE [Concomitant]
     Indication: CORD BLOOD TRANSPLANT THERAPY
     Route: 065
     Dates: start: 20071001

REACTIONS (3)
  - DISSEMINATED TUBERCULOSIS [None]
  - HYPOXIA [None]
  - IMMUNE SYSTEM DISORDER [None]
